FAERS Safety Report 6463367-9 (Version None)
Quarter: 2009Q4

REPORT INFORMATION
  Report Type: 
  Country: None (occurrence: None)
  Receive Date: 20091201
  Receipt Date: 20090820
  Transmission Date: 20100525
  Serious: Yes (Other)
  Sender: FDA-Public Use
  Company Number: US-AMGEN-QUU357815

PATIENT
  Sex: Female
  Weight: 139.8 kg

DRUGS (33)
  1. ENBREL [Suspect]
     Indication: ANKYLOSING SPONDYLITIS
     Route: 058
     Dates: start: 20090715
  2. ENBREL [Suspect]
     Indication: PSORIATIC ARTHROPATHY
  3. ENBREL [Suspect]
     Indication: PSORIASIS
  4. PRILOSEC [Concomitant]
  5. GEMFIBROZIL [Concomitant]
  6. LISINOPRIL [Concomitant]
  7. WELLBUTRIN [Concomitant]
  8. DIAZEPAM [Concomitant]
  9. CYMBALTA [Concomitant]
  10. XYZAL [Concomitant]
  11. ASACOL [Concomitant]
  12. LEVEMIR [Concomitant]
  13. HUMULIN R [Concomitant]
  14. METFORMIN HCL [Concomitant]
  15. GLUCOTROL [Concomitant]
  16. PROVIGIL [Concomitant]
  17. POTASSIUM CHLORIDE [Concomitant]
  18. LEVOXYL [Concomitant]
  19. ESTROGEL [Concomitant]
  20. TYLENOL W/ CODEINE NO. 3 [Concomitant]
  21. MOTRIN [Concomitant]
  22. DARVOCET-N 100 [Concomitant]
  23. OXYBUTYNIN [Concomitant]
  24. PHENAZOPYRIDINE HCL TAB [Concomitant]
  25. NIZORAL [Concomitant]
  26. DIFLUCAN [Concomitant]
  27. LOPERAMIDE [Concomitant]
  28. DICYCLOMINE HYDROCHLORIDE [Concomitant]
  29. COMBIVENT [Concomitant]
  30. ALBUTEROL [Concomitant]
  31. CLOBETASOL PROPIONATE [Concomitant]
     Route: 061
  32. CORMAX [Concomitant]
     Route: 061
  33. DESONIDE [Concomitant]
     Route: 061

REACTIONS (2)
  - DEPRESSION [None]
  - FATIGUE [None]
